FAERS Safety Report 20085052 (Version 2)
Quarter: 2022Q1

REPORT INFORMATION
  Report Type: Spontaneous
  Country: SE (occurrence: SE)
  Receive Date: 20211118
  Receipt Date: 20220302
  Transmission Date: 20220423
  Serious: Yes (Life-Threatening, Hospitalization)
  Sender: FDA-Public Use
  Company Number: None

PATIENT
  Age: 51 Year
  Sex: Female
  Weight: 50 kg

DRUGS (1)
  1. IBUPROFEN [Suspect]
     Active Substance: IBUPROFEN
     Indication: Myositis
     Dosage: DOSAGE 2 TABLETS/DAY
     Route: 048
     Dates: start: 20210907, end: 20211012

REACTIONS (1)
  - Gastric ulcer perforation [Recovering/Resolving]

NARRATIVE: CASE EVENT DATE: 20211016
